FAERS Safety Report 6753872-X (Version None)
Quarter: 2010Q2

REPORT INFORMATION
  Report Type: 
  Country: None (occurrence: None)
  Receive Date: 20100603
  Receipt Date: 20100525
  Transmission Date: 20101027
  Serious: Yes (Hospitalization)
  Sender: FDA-Public Use
  Company Number: GB-CVT-100355

PATIENT

DRUGS (17)
  1. RANEXA [Suspect]
     Indication: CARDIAC FAILURE CONGESTIVE
     Dosage: 375 MG, QD
     Route: 048
  2. GLYCERYL TRINITRATE [Concomitant]
  3. RAMIPRIL                           /00885601/ [Concomitant]
  4. BISOPROLOL                         /00802601/ [Concomitant]
  5. CLOPIDOGREL                        /01220701/ [Concomitant]
  6. FUROSEMIDE                         /00032601/ [Concomitant]
  7. ISOSORBIDE MONONITRATE [Concomitant]
  8. LACTULOSE [Concomitant]
  9. LANSOPRAZOLE [Concomitant]
  10. NICORANDIL [Concomitant]
  11. PARACETAMOL [Concomitant]
  12. QUININE SULFATE [Concomitant]
  13. SENNA [Concomitant]
  14. SPIRONOLACTONE [Concomitant]
  15. TRAMADOL HYDROCHLORIDE [Concomitant]
  16. ZOPICLONE [Concomitant]
  17. BEZAFIBRATE [Concomitant]

REACTIONS (1)
  - INAPPROPRIATE ANTIDIURETIC HORMONE SECRETION [None]
